FAERS Safety Report 8318657-1 (Version None)
Quarter: 2012Q2

REPORT INFORMATION
  Report Type: 
  Country: None (occurrence: None)
  Receive Date: 20120427
  Receipt Date: 20120418
  Transmission Date: 20120825
  Serious: Yes (Hospitalization)
  Sender: FDA-Public Use
  Company Number: DE-ELI_LILLY_AND_COMPANY-DE201202001367

PATIENT
  Age: 61 Year
  Sex: Female
  Weight: 42 kg

DRUGS (3)
  1. FENTANYL [Concomitant]
  2. BOTOX [Concomitant]
  3. FORTEO [Suspect]
     Indication: OSTEOPOROSIS
     Dosage: UNK, QD
     Route: 058
     Dates: start: 20101029

REACTIONS (3)
  - BLADDER CANCER [None]
  - WEIGHT DECREASED [None]
  - ASTHENIA [None]
